FAERS Safety Report 18690824 (Version 2)
Quarter: 2021Q2

REPORT INFORMATION
  Report Type: Spontaneous
  Country: US (occurrence: US)
  Receive Date: 20210101
  Receipt Date: 20210420
  Transmission Date: 20210717
  Serious: Yes (Life-Threatening, Hospitalization, Congenital Anomaly, Other)
  Sender: FDA-Public Use
  Company Number: US-DRREDDYS-USA/USA/20/0130490

PATIENT
  Age: 32 Year
  Sex: Female

DRUGS (5)
  1. IBUPROFEN. [Suspect]
     Active Substance: IBUPROFEN
     Indication: PRODUCT USED FOR UNKNOWN INDICATION
     Route: 064
  2. PARACETAMOL [Suspect]
     Active Substance: ACETAMINOPHEN
     Indication: PRODUCT USED FOR UNKNOWN INDICATION
     Route: 064
  3. ACETYLSALICYLIC ACID [Suspect]
     Active Substance: ASPIRIN
     Indication: PRE-ECLAMPSIA
     Route: 064
  4. BETAMETHASONE. [Suspect]
     Active Substance: BETAMETHASONE
     Indication: PRODUCT USED FOR UNKNOWN INDICATION
     Route: 064
  5. CITALOPRAM [Concomitant]
     Active Substance: CITALOPRAM HYDROBROMIDE
     Indication: DEPRESSION
     Route: 064

REACTIONS (15)
  - Diastolic dysfunction [Recovered/Resolved]
  - Ventricular septal defect [Recovered/Resolved]
  - Respiratory failure [Recovered/Resolved]
  - Right ventricular dysfunction [Recovered/Resolved]
  - Premature baby [Recovered/Resolved]
  - Systolic dysfunction [Recovered/Resolved]
  - Foetal exposure during pregnancy [Recovered/Resolved]
  - Pulmonary valve disease [Recovered/Resolved]
  - Ductus arteriosus premature closure [Recovered/Resolved]
  - Sinus tachycardia [Recovered/Resolved]
  - Pulmonary hypertension [Recovered/Resolved]
  - Right ventricular hypertrophy [Recovered/Resolved]
  - Cardiomegaly [Recovered/Resolved]
  - Tricuspid valve incompetence [Recovered/Resolved]
  - Atrial septal defect [Recovered/Resolved]
